FAERS Safety Report 5909597-3 (Version None)
Quarter: 2008Q4

REPORT INFORMATION
  Report Type: 
  Country: None (occurrence: None)
  Receive Date: 20081002
  Receipt Date: 20080926
  Transmission Date: 20090506
  Serious: Yes (Other)
  Sender: FDA-Public Use
  Company Number: POMP-1000283

PATIENT
  Age: 66 Year
  Sex: Male
  Weight: 85.8 kg

DRUGS (9)
  1. MYOZYME [Suspect]
     Indication: GLYCOGEN STORAGE DISEASE TYPE II
     Dosage: 20 MG/KG, Q2W, INTRAVENOUS
     Route: 042
     Dates: start: 20080602
  2. COZAAR [Concomitant]
  3. NORVASC [Concomitant]
  4. INDAPAMIDE (INADAPAMIDE) [Concomitant]
  5. ZOLOFT [Concomitant]
  6. THYROID SUPPLEMENT [Concomitant]
  7. POTASSIUM (POTASSIUM) [Concomitant]
  8. FISH OIL SUPPLEMENT [Concomitant]
  9. MULTIVITAMIN [Concomitant]

REACTIONS (11)
  - ASTHENIA [None]
  - BLOOD POTASSIUM DECREASED [None]
  - CONDITION AGGRAVATED [None]
  - DYSPHAGIA [None]
  - FEELING ABNORMAL [None]
  - HYPOTHYROIDISM [None]
  - MASTICATION DISORDER [None]
  - MOBILITY DECREASED [None]
  - PARALYSIS [None]
  - SOMNOLENCE [None]
  - TREATMENT NONCOMPLIANCE [None]
